FAERS Safety Report 4325275-9 (Version None)
Quarter: 2004Q1

REPORT INFORMATION
  Report Type: 
  Country: None (occurrence: None)
  Receive Date: 20040324
  Receipt Date: 20040309
  Transmission Date: 20041129
  Serious: Yes (Other)
  Sender: FDA-Public Use
  Company Number: JP_040302767

PATIENT
  Age: 58 Year
  Sex: Male

DRUGS (4)
  1. EXAL (VINBLASTINE SULFATE) [Suspect]
     Indication: HODGKIN'S DISEASE
  2. ADRIAMYCIN (DOXORUBICIN) [Concomitant]
  3. BLEOMYCIN [Concomitant]
  4. DACARBAZINE [Concomitant]

REACTIONS (1)
  - STEVENS-JOHNSON SYNDROME [None]
